FAERS Safety Report 7409213-8 (Version None)
Quarter: 2011Q2

REPORT INFORMATION
  Report Type: 
  Country: None (occurrence: None)
  Receive Date: 20110412
  Receipt Date: 20110407
  Transmission Date: 20111010
  Serious: Yes (Hospitalization)
  Sender: FDA-Public Use
  Company Number: A0548592A

PATIENT
  Sex: Female
  Weight: 83.6 kg

DRUGS (4)
  1. AVANDIA [Suspect]
     Route: 048
  2. ASENDIN [Concomitant]
  3. VISTARIL [Concomitant]
  4. ASPIRIN [Concomitant]

REACTIONS (4)
  - SUPRAVENTRICULAR TACHYCARDIA [None]
  - MYOCARDIAL INFARCTION [None]
  - CARDIAC ARREST [None]
  - CARDIOVASCULAR DISORDER [None]
